FAERS Safety Report 9504310 (Version 1)
Quarter: 2013Q3

REPORT INFORMATION
  Report Type: Report from Study
  Country: US (occurrence: US)
  Receive Date: 20130906
  Receipt Date: 20130906
  Transmission Date: 20140515
  Serious: Yes (Hospitalization)
  Sender: FDA-Public Use
  Company Number: US-US-EMD SERONO, INC.-7235278

PATIENT
  Age: 53 Year
  Sex: Female
  Weight: 58 kg

DRUGS (5)
  1. REBIF [Suspect]
     Indication: MULTIPLE SCLEROSIS
     Dates: start: 20070518, end: 201111
  2. REBIF [Suspect]
     Dates: start: 201201
  3. LEVOTHYROXINE [Concomitant]
     Indication: HYPOTHYROIDISM
  4. TEGRETOL [Concomitant]
     Indication: NEUROPATHY PERIPHERAL
  5. NEURONTIN [Concomitant]
     Indication: NEUROPATHY PERIPHERAL

REACTIONS (2)
  - Neuromyelitis optica [Recovered/Resolved]
  - Central nervous system lesion [Recovered/Resolved]
